FAERS Safety Report 25608386 (Version 1)
Quarter: 2025Q3

REPORT INFORMATION
  Report Type: Spontaneous
  Country: US (occurrence: US)
  Receive Date: 20250726
  Receipt Date: 20250726
  Transmission Date: 20251021
  Serious: No
  Sender: SANOFI AVENTIS
  Company Number: US-SA-2025SA213461

PATIENT
  Sex: Female

DRUGS (7)
  1. DUPIXENT [Suspect]
     Active Substance: DUPILUMAB
     Indication: Dermatitis atopic
     Dosage: 300 MG, QOW
     Route: 058
     Dates: start: 20220211
  2. DOXYCYCLINE HYCLATE [Concomitant]
     Active Substance: DOXYCYCLINE HYCLATE
  3. ELIDEL [Concomitant]
     Active Substance: PIMECROLIMUS
  4. HYDROCORTISONE [Concomitant]
     Active Substance: HYDROCORTISONE
  5. MUPIROCIN [Concomitant]
     Active Substance: MUPIROCIN
  6. RINVOQ [Concomitant]
     Active Substance: UPADACITINIB
  7. TACROLIMUS [Concomitant]
     Active Substance: TACROLIMUS

REACTIONS (2)
  - Discomfort [Unknown]
  - Rash [Unknown]
